FAERS Safety Report 4291738-8 (Version None)
Quarter: 2004Q1

REPORT INFORMATION
  Report Type: 
  Country: None (occurrence: None)
  Receive Date: 20040211
  Receipt Date: 20030130
  Transmission Date: 20041129
  Serious: No
  Sender: FDA-Public Use
  Company Number: US-GLAXOSMITHKLINE-A0394709A

PATIENT
  Age: 22 Year
  Sex: Female

DRUGS (5)
  1. IMITREX [Suspect]
     Indication: MIGRAINE
     Dosage: 6MG UNKNOWN
     Route: 058
     Dates: start: 20030101, end: 20030101
  2. AMERGE [Suspect]
     Indication: MIGRAINE
     Route: 065
  3. LEVOXYL [Concomitant]
  4. PROMETHAZINE [Concomitant]
  5. DEPO-PROVERA [Concomitant]

REACTIONS (6)
  - DIZZINESS [None]
  - ERYTHEMA [None]
  - FLUSHING [None]
  - NONSPECIFIC REACTION [None]
  - PRURITUS [None]
  - URTICARIA [None]
